FAERS Safety Report 9149806 (Version 6)
Quarter: 2013Q2

REPORT INFORMATION
  Report Type: Spontaneous
  Country: PL (occurrence: PL)
  Receive Date: 20130308
  Receipt Date: 20130523
  Transmission Date: 20140414
  Serious: Yes (Congenital Anomaly)
  Sender: FDA-Public Use
  Company Number: PL-PFIZER INC-2013075933

PATIENT
  Sex: 0

DRUGS (4)
  1. PROVERA [Suspect]
     Indication: AMENORRHOEA
     Dosage: UNK, TWICE A DAY
     Route: 064
     Dates: start: 20080331, end: 20080406
  2. PROVERA [Suspect]
     Indication: CYST
  3. METRONIDAZOLE [Suspect]
     Indication: INFECTION
     Dosage: 2X/DAY
     Route: 064
     Dates: start: 20080331, end: 20080406
  4. DICLORATIO [Suspect]
     Indication: PAIN
     Dosage: 1X/DAY
     Route: 064
     Dates: start: 20080331, end: 20080406

REACTIONS (2)
  - Maternal exposure during pregnancy [Not Recovered/Not Resolved]
  - Congenital anomaly [Not Recovered/Not Resolved]
